FAERS Safety Report 9626716 (Version 1)
Quarter: 2013Q4

REPORT INFORMATION
  Report Type: Spontaneous
  Country: CA (occurrence: CA)
  Receive Date: 20131016
  Receipt Date: 20131016
  Transmission Date: 20140711
  Serious: Yes (Other)
  Sender: FDA-Public Use
  Company Number: CA-AMGEN-CANSP2013072217

PATIENT
  Age: 47 Year
  Sex: Male

DRUGS (2)
  1. ENBREL [Suspect]
     Indication: PRODUCT USED FOR UNKNOWN INDICATION
     Dosage: 50 MG, QWK
     Route: 065
  2. METHOTREXATE [Concomitant]
     Dosage: UNK
     Route: 048

REACTIONS (3)
  - Type 2 diabetes mellitus [Unknown]
  - Fatigue [Unknown]
  - Feeling abnormal [Unknown]
